FAERS Safety Report 9238374 (Version 2)
Quarter: 2013Q2

REPORT INFORMATION
  Report Type: Spontaneous
  Country: BR (occurrence: None)
  Receive Date: 20130416
  Receipt Date: 20130521
  Transmission Date: 20140414
  Serious: Yes (Other)
  Sender: FDA-Public Use
  Company Number: ENT 2013-0070

PATIENT
  Age: 68 Year
  Sex: Female

DRUGS (2)
  1. COMTAN [Suspect]
     Indication: PARKINSON^S DISEASE
     Dosage: UNKNOWN
  2. PAMELOR [Suspect]
     Indication: PARKINSON^S DISEASE
     Route: 048

REACTIONS (3)
  - Parkinson^s disease [None]
  - Off label use [None]
  - No adverse event [None]
